FAERS Safety Report 4437003-7 (Version None)
Quarter: 2004Q3

REPORT INFORMATION
  Report Type: 
  Country: None (occurrence: None)
  Receive Date: 20040830
  Receipt Date: 20040820
  Transmission Date: 20050211
  Serious: Yes (Hospitalization)
  Sender: FDA-Public Use
  Company Number: US-ROCHE-378346

PATIENT
  Age: 25 Year
  Sex: Female

DRUGS (1)
  1. ACCUTANE [Suspect]
     Indication: ACNE
     Route: 048
     Dates: start: 19990215, end: 19990815

REACTIONS (3)
  - ARTHROPATHY [None]
  - CALCULUS URINARY [None]
  - CROHN'S DISEASE [None]
